FAERS Safety Report 8517359-6 (Version None)
Quarter: 2012Q3

REPORT INFORMATION
  Report Type: 
  Country: None (occurrence: None)
  Receive Date: 20120718
  Receipt Date: 20120709
  Transmission Date: 20120928
  Serious: Yes (Hospitalization)
  Sender: FDA-Public Use
  Company Number: JP-ASTRAZENECA-2012SE45162

PATIENT
  Age: 76 Year
  Sex: Female
  Weight: 53 kg

DRUGS (4)
  1. NEXIUM [Suspect]
     Indication: DYSPEPSIA
     Route: 048
     Dates: start: 20120428, end: 20120521
  2. BEZATATE [Concomitant]
     Indication: DYSLIPIDAEMIA
     Route: 048
     Dates: start: 20080912
  3. MEXITIL [Concomitant]
     Indication: VENTRICULAR EXTRASYSTOLES
     Route: 048
     Dates: start: 20111018
  4. BISOPROLOL FUMARATE [Concomitant]
     Indication: VENTRICULAR EXTRASYSTOLES
     Route: 048
     Dates: start: 20111018

REACTIONS (7)
  - RENAL IMPAIRMENT [None]
  - URINE OUTPUT DECREASED [None]
  - WEIGHT INCREASED [None]
  - INCREASED APPETITE [None]
  - CARDIAC FAILURE [None]
  - GAIT DISTURBANCE [None]
  - OEDEMA [None]
